FAERS Safety Report 6320083-1 (Version None)
Quarter: 2009Q3

REPORT INFORMATION
  Report Type: 
  Country: None (occurrence: None)
  Receive Date: 20090822
  Receipt Date: 20081017
  Transmission Date: 20100115
  Serious: No
  Sender: FDA-Public Use
  Company Number: US-ABBOTT-08P-163-0482563-00

PATIENT
  Sex: Male
  Weight: 90.346 kg

DRUGS (2)
  1. NIASPAN [Suspect]
     Indication: HIGH DENSITY LIPOPROTEIN DECREASED
     Dosage: AT HS
     Route: 048
     Dates: start: 20080908, end: 20081006
  2. NIASPAN [Suspect]
     Dosage: AT HS
     Route: 048
     Dates: start: 20081006

REACTIONS (3)
  - DISCOMFORT [None]
  - ERYTHEMA [None]
  - FLUSHING [None]
